FAERS Safety Report 7967077-8 (Version None)
Quarter: 2011Q4

REPORT INFORMATION
  Report Type: 
  Country: None (occurrence: None)
  Receive Date: 20111207
  Receipt Date: 20111207
  Transmission Date: 20120403
  Serious: Yes (Hospitalization)
  Sender: FDA-Public Use
  Company Number: None

PATIENT
  Age: 59 Year
  Sex: Male
  Weight: 108.3 kg

DRUGS (1)
  1. WARFARIN SODIUM [Suspect]
     Indication: INTRACARDIAC THROMBUS
     Dosage: MG PO
     Route: 048
     Dates: start: 20110919

REACTIONS (1)
  - TRANSIENT ISCHAEMIC ATTACK [None]
